FAERS Safety Report 12919684 (Version 1)
Quarter: 2016Q4

REPORT INFORMATION
  Report Type: Spontaneous
  Country: US (occurrence: US)
  Receive Date: 20161108
  Receipt Date: 20161108
  Transmission Date: 20170207
  Serious: Yes (Other)
  Sender: FDA-Public Use
  Company Number: US-ASTRAZENECA-2016SF14792

PATIENT
  Sex: Female

DRUGS (5)
  1. BECLOMETHASONE [Suspect]
     Active Substance: BECLOMETHASONE
     Route: 065
  2. BUDESONIDE. [Suspect]
     Active Substance: BUDESONIDE
     Route: 055
  3. SYMBICORT [Suspect]
     Active Substance: BUDESONIDE\FORMOTEROL FUMARATE DIHYDRATE
     Indication: ASTHMA
     Route: 055
  4. BECLOMETHASONE [Suspect]
     Active Substance: BECLOMETHASONE
     Dosage: QVAR
     Route: 065
  5. BUDESONIDE. [Suspect]
     Active Substance: BUDESONIDE
     Route: 055

REACTIONS (4)
  - Dry throat [Unknown]
  - Dysphonia [Unknown]
  - Laryngeal oedema [Unknown]
  - Vocal cord disorder [Unknown]
